FAERS Safety Report 10641266 (Version 3)
Quarter: 2015Q1

REPORT INFORMATION
  Report Type: Spontaneous
  Country: DE (occurrence: DE)
  Receive Date: 20141209
  Receipt Date: 20150112
  Transmission Date: 20150720
  Serious: Yes (Other)
  Sender: FDA-Public Use
  Company Number: PHHY2014DE157059

PATIENT
  Sex: Female

DRUGS (1)
  1. TASIGNA [Suspect]
     Active Substance: NILOTINIB
     Indication: CHRONIC MYELOID LEUKAEMIA
     Dosage: 300 MG, QD
     Route: 065

REACTIONS (9)
  - Joint swelling [Unknown]
  - Liver function test abnormal [Recovered/Resolved]
  - Pain [Recovering/Resolving]
  - Insomnia [Unknown]
  - Arthropathy [Not Recovered/Not Resolved]
  - Swelling [Unknown]
  - Arthritis [Not Recovered/Not Resolved]
  - White blood cell count increased [Unknown]
  - Gait disturbance [Unknown]
